FAERS Safety Report 8053342 (Version 2)
Quarter: 2012Q4

REPORT INFORMATION
  Report Type: 
  Country: US (occurrence: US)
  Receive Date: 20110725
  Receipt Date: 20121109
  Transmission Date: 20130627
  Serious: No
  Sender: FDA-Public Use
  Company Number: US-ASTRAZENECA-2011SE42575

PATIENT
  Age: 65 Year
  Sex: Male
  Weight: 101.6 kg

DRUGS (6)
  1. SEROQUEL [Suspect]
     Indication: DEPRESSION
     Route: 048
  2. ACTOS [Concomitant]
  3. GLUCOPHAGE [Concomitant]
  4. GLUCOTROL [Concomitant]
  5. TRAMADOL [Concomitant]
  6. NEURONTIN [Concomitant]

REACTIONS (7)
  - Pain in extremity [Unknown]
  - Insomnia [Unknown]
  - Aphagia [Unknown]
  - Agitation [Unknown]
  - Mental impairment [Unknown]
  - Constipation [Unknown]
  - Drug dose omission [Unknown]
